APPROVED DRUG PRODUCT: HALOPERIDOL
Active Ingredient: HALOPERIDOL
Strength: 0.5MG
Dosage Form/Route: TABLET;ORAL
Application: A077580 | Product #001 | TE Code: AB
Applicant: ZYDUS PHARMACEUTICALS USA INC
Approved: Jan 17, 2023 | RLD: No | RS: No | Type: RX